FAERS Safety Report 18530612 (Version 1)
Quarter: 2020Q4

REPORT INFORMATION
  Report Type: Spontaneous
  Country: FR (occurrence: FR)
  Receive Date: 20201121
  Receipt Date: 20201121
  Transmission Date: 20210114
  Serious: Yes (Hospitalization)
  Sender: FDA-Public Use
  Company Number: FR-DRREDDYS-GER/FRA/20/0129241

PATIENT
  Age: 63 Year
  Sex: Male
  Weight: 70 kg

DRUGS (4)
  1. DAPTOMYCIN. [Suspect]
     Active Substance: DAPTOMYCIN
     Indication: INFECTION
     Route: 042
     Dates: start: 20200523, end: 20200611
  2. ERTAPENEM. [Suspect]
     Active Substance: ERTAPENEM SODIUM
     Indication: INFECTION
     Route: 042
     Dates: start: 20200704, end: 20200821
  3. IMIPENEM ANHYDRE [Suspect]
     Active Substance: IMIPENEM
     Indication: INFECTION
     Route: 042
     Dates: start: 20200514, end: 20200704
  4. MEROPENEM ANHYDRE [Suspect]
     Active Substance: MEROPENEM
     Indication: LUNG DISORDER
     Route: 042
     Dates: start: 20200421, end: 20200428

REACTIONS (2)
  - Condition aggravated [Not Recovered/Not Resolved]
  - Eosinophilia [Not Recovered/Not Resolved]

NARRATIVE: CASE EVENT DATE: 2020
